FAERS Safety Report 22075471 (Version 1)
Quarter: 2023Q1

REPORT INFORMATION
  Report Type: Spontaneous
  Country: US (occurrence: None)
  Receive Date: 20230307
  Receipt Date: 20230307
  Transmission Date: 20230418
  Serious: Yes (Death)
  Sender: FDA-Public Use
  Company Number: None

PATIENT
  Age: 81 Year
  Sex: Male

DRUGS (11)
  1. PROLIA [Suspect]
     Active Substance: DENOSUMAB
     Indication: Osteoporosis
     Dosage: OTHER FREQUENCY : EVERY 6 MONTHS;?
     Route: 058
     Dates: start: 20220315
  2. AMMONIUM LAC 12% LOTION [Concomitant]
  3. ASPIRIN EC LOW DOSE [Concomitant]
  4. CALCIUM\CHOLECALCIFEROL [Concomitant]
     Active Substance: CALCIUM\CHOLECALCIFEROL
  5. FAMOTIDINE [Concomitant]
     Active Substance: FAMOTIDINE
  6. GABAPENTIN [Concomitant]
     Active Substance: GABAPENTIN
  7. GLIPIZIDE ER [Concomitant]
     Active Substance: GLIPIZIDE
  8. IPRATROPIALB [Concomitant]
  9. LISINOPRIL [Concomitant]
     Active Substance: LISINOPRIL
  10. METOPROLOL TARTRATE [Concomitant]
     Active Substance: METOPROLOL TARTRATE
  11. ROSUVASTATIN [Concomitant]
     Active Substance: ROSUVASTATIN

REACTIONS (1)
  - Death [None]
